FAERS Safety Report 25874488 (Version 1)
Quarter: 2025Q4

REPORT INFORMATION
  Report Type: Spontaneous
  Country: US (occurrence: None)
  Receive Date: 20251002
  Receipt Date: 20251002
  Transmission Date: 20260119
  Serious: Yes (unspecified)
  Sender: FDA-CTU
  Company Number: None

PATIENT
  Age: 79 Year
  Sex: Female
  Weight: 81 kg

DRUGS (1)
  1. APREPITANT [Suspect]
     Active Substance: APREPITANT
     Indication: Prophylaxis of nausea and vomiting
     Dosage: OTHER FREQUENCY : PRE-OP ONCE;?
     Route: 048
     Dates: start: 20250922, end: 20250922

REACTIONS (1)
  - Acute pulmonary oedema [None]

NARRATIVE: CASE EVENT DATE: 20250922
